FAERS Safety Report 4278893-0 (Version None)
Quarter: 2004Q1

REPORT INFORMATION
  Report Type: 
  Country: None (occurrence: None)
  Receive Date: 20040122
  Receipt Date: 20040112
  Transmission Date: 20041129
  Serious: Yes (Death)
  Sender: FDA-Public Use
  Company Number: 04P-163-0246883-00

PATIENT
  Age: 70 Year
  Sex: Female

DRUGS (8)
  1. HUMIRA [Suspect]
     Indication: RHEUMATOID ARTHRITIS
     Dosage: 40 MG, 1 IN 2 WK, SUBCUTANEOUS
     Route: 058
     Dates: start: 20030801
  2. ACTOPRIL [Concomitant]
  3. MIRAPEX [Concomitant]
  4. AMANTADINE HCL [Concomitant]
  5. INSULIN GLARGINE [Concomitant]
  6. HUMALOG SLIDING SCALE [Concomitant]
  7. ACETYLSALICYLIC ACID SRT [Concomitant]
  8. FUROSEMIDE [Concomitant]

REACTIONS (1)
  - DEATH [None]
